FAERS Safety Report 4339413-5 (Version None)
Quarter: 2004Q2

REPORT INFORMATION
  Report Type: 
  Country: None (occurrence: None)
  Receive Date: 20040415
  Receipt Date: 20040405
  Transmission Date: 20050107
  Serious: Yes (Other)
  Sender: FDA-Public Use
  Company Number: PHBS2004ES04523

PATIENT
  Age: 51 Year
  Sex: Male

DRUGS (6)
  1. LYMETEL (LIC TO LABORATORIOS ANDROMACO) [Suspect]
     Dosage: 40 MG/DAY
  2. LYMETEL PROLIB (LIC TO LABORATORIOS ANDROMACO) [Suspect]
     Dosage: 80 MG/DAY
  3. ALBUTEROL SULFATE [Concomitant]
  4. SALMETEROL [Concomitant]
  5. FLUTICASONE PROPIONATE [Concomitant]
  6. TIOTROPIUM BROMIDE [Concomitant]

REACTIONS (2)
  - FIBROMYALGIA [None]
  - MYALGIA [None]
